FAERS Safety Report 7386525-8 (Version None)
Quarter: 2011Q1

REPORT INFORMATION
  Report Type: 
  Country: None (occurrence: None)
  Receive Date: 20110329
  Receipt Date: 20110329
  Transmission Date: 20110831
  Serious: Yes (Other)
  Sender: FDA-Public Use
  Company Number: None

PATIENT
  Sex: Female

DRUGS (2)
  1. FML DROPS [Concomitant]
  2. OFLOXACIN [Suspect]
     Indication: KERATITIS
     Dosage: 1 DROP 4 TIMES A DAY OPHTHALMIC
     Route: 047
     Dates: start: 20110304, end: 20110314

REACTIONS (2)
  - SENSORY DISTURBANCE [None]
  - LIP DISORDER [None]
